FAERS Safety Report 4372573-9 (Version None)
Quarter: 2004Q2

REPORT INFORMATION
  Report Type: 
  Country: None (occurrence: None)
  Receive Date: 20040608
  Receipt Date: 20040505
  Transmission Date: 20050107
  Serious: Yes (Other)
  Sender: FDA-Public Use
  Company Number: US-BRISTOL-MYERS SQUIBB COMPANY-12579736

PATIENT
  Age: 71 Year
  Sex: Male
  Weight: 99 kg

DRUGS (7)
  1. ERBITUX [Suspect]
     Indication: COLON CANCER METASTATIC
     Dosage: RECEIVED APPROXIMATELY 400 MG OF A SCHEDULED DOSE OF 800MG.
     Route: 042
     Dates: start: 20040421, end: 20040421
  2. BENADRYL [Concomitant]
     Indication: PREMEDICATION
     Dates: start: 20040421, end: 20040421
  3. TYLENOL [Concomitant]
     Indication: PREMEDICATION
     Dates: start: 20040421, end: 20040421
  4. GLUCOSAMINE [Concomitant]
  5. NEXIUM [Concomitant]
  6. NORVASC [Concomitant]
  7. MULTI-VITAMIN [Concomitant]

REACTIONS (5)
  - BLOOD PRESSURE INCREASED [None]
  - CHEST DISCOMFORT [None]
  - CHEST PAIN [None]
  - CHILLS [None]
  - PHARYNX DISCOMFORT [None]
